FAERS Safety Report 21624807 (Version 1)
Quarter: 2022Q4

REPORT INFORMATION
  Report Type: Spontaneous
  Country: US (occurrence: ZA)
  Receive Date: 20221122
  Receipt Date: 20221122
  Transmission Date: 20230112
  Serious: No
  Sender: FDA-Public Use
  Company Number: US-ALKEM LABORATORIES LIMITED-US-ALKEM-2022-09771

PATIENT
  Sex: Female

DRUGS (3)
  1. ISONIAZID [Suspect]
     Active Substance: ISONIAZID
     Indication: Antibiotic prophylaxis
     Dosage: 900 MILLIGRAM WEEKLY FOR 12 WEEKS, DIRECTLY OBSERVED (3HP)
     Route: 065
  2. RIFAPENTINE [Suspect]
     Active Substance: RIFAPENTINE
     Indication: Antibiotic prophylaxis
     Dosage: 900 MILLIGRAM WEEKLY FOR 12 WEEKS, DIRECTLY OBSERVED (3HP)
     Route: 065
  3. VITAMIN B6 [Suspect]
     Active Substance: PYRIDOXINE HYDROCHLORIDE
     Indication: Product used for unknown indication
     Dosage: 25 MILLIGRAM WITH EACH ISONIAZID DOSE
     Route: 065

REACTIONS (1)
  - Exposure during pregnancy [Unknown]
